FAERS Safety Report 4908389-1 (Version None)
Quarter: 2006Q1

REPORT INFORMATION
  Report Type: 
  Country: None (occurrence: None)
  Receive Date: 20060210
  Receipt Date: 20060131
  Transmission Date: 20060701
  Serious: Yes (Other)
  Sender: FDA-Public Use
  Company Number: PHEH2006US01551

PATIENT
  Age: 57 Year
  Sex: Female

DRUGS (6)
  1. ZOMETA [Suspect]
     Indication: BREAST CANCER METASTATIC
     Dosage: 4 MG, QMO
     Dates: start: 20040115, end: 20051221
  2. FASLODEX [Concomitant]
     Indication: BREAST CANCER METASTATIC
     Dosage: 250 MG, QMO
     Dates: start: 20051221
  3. FASLODEX [Concomitant]
     Dosage: 250 MG, QMO
     Dates: start: 20051221
  4. XELODA [Concomitant]
     Indication: BREAST CANCER METASTATIC
     Dosage: 1150 MG, BID
     Route: 048
     Dates: start: 20040421
  5. TAXOTERE [Concomitant]
     Dosage: 120 MG, Q 21 DAYS X 2
     Dates: start: 20040209, end: 20040629
  6. TAXOTERE [Concomitant]
     Dosage: 90 MG, Q 21 X 5

REACTIONS (7)
  - BONE DISORDER [None]
  - IMPAIRED HEALING [None]
  - LOCALISED INFECTION [None]
  - OSTEONECROSIS [None]
  - PAIN [None]
  - TOOTH EXTRACTION [None]
  - TRANSIENT ISCHAEMIC ATTACK [None]
